FAERS Safety Report 17833426 (Version 1)
Quarter: 2020Q2

REPORT INFORMATION
  Report Type: Spontaneous
  Country: US (occurrence: US)
  Receive Date: 20200527
  Receipt Date: 20200527
  Transmission Date: 20200714
  Serious: Yes (Death)
  Sender: FDA-Public Use
  Company Number: None

PATIENT
  Age: 51 Year
  Sex: Female
  Weight: 57.1 kg

DRUGS (23)
  1. METOPROLOL. [Concomitant]
     Active Substance: METOPROLOL
  2. REMDESIVIR. [Suspect]
     Active Substance: REMDESIVIR
     Indication: COVID-19
     Route: 042
     Dates: start: 20200520, end: 20200520
  3. DIGOXIN. [Concomitant]
     Active Substance: DIGOXIN
  4. ASCORBIC ACID. [Concomitant]
     Active Substance: ASCORBIC ACID
  5. BUSPIRONE [Concomitant]
     Active Substance: BUSPIRONE HYDROCHLORIDE
  6. LOVENOX [Concomitant]
     Active Substance: ENOXAPARIN SODIUM
  7. AZTREONAM. [Concomitant]
     Active Substance: AZTREONAM
  8. BISACODYL. [Concomitant]
     Active Substance: BISACODYL
  9. PROPOFOL. [Concomitant]
     Active Substance: PROPOFOL
  10. REMDESIVIR SOLUTION [Suspect]
     Active Substance: REMDESIVIR
     Indication: COVID-19
     Route: 042
     Dates: start: 20200519, end: 20200519
  11. ALBUTEROL. [Concomitant]
     Active Substance: ALBUTEROL
  12. DEXMEDETOMINDINE ADDITIVE [Concomitant]
  13. EPINEPHRINE. [Concomitant]
     Active Substance: EPINEPHRINE
  14. FENTALNYL [Concomitant]
  15. ATORVASTATIN [Concomitant]
     Active Substance: ATORVASTATIN
  16. GUAIFENESIN ER [Concomitant]
     Active Substance: GUAIFENESIN
  17. CELEBREX [Concomitant]
     Active Substance: CELECOXIB
  18. CLONAZEPAM. [Concomitant]
     Active Substance: CLONAZEPAM
  19. DEPAKOTE [Concomitant]
     Active Substance: DIVALPROEX SODIUM
  20. FENTANYL. [Concomitant]
     Active Substance: FENTANYL
  21. RISPERIDONE. [Concomitant]
     Active Substance: RISPERIDONE
  22. CARBIDOPA-LEVODOPA [Concomitant]
     Active Substance: CARBIDOPA\LEVODOPA
  23. VANCOMYCIN [Concomitant]
     Active Substance: VANCOMYCIN

REACTIONS (5)
  - Lethargy [None]
  - Pneumothorax [None]
  - Respiratory failure [None]
  - Blood pressure decreased [None]
  - Cardiac arrest [None]

NARRATIVE: CASE EVENT DATE: 20200521
